FAERS Safety Report 4749874-5 (Version None)
Quarter: 2005Q3

REPORT INFORMATION
  Report Type: 
  Country: None (occurrence: None)
  Receive Date: 20050818
  Receipt Date: 20050803
  Transmission Date: 20060218
  Serious: No
  Sender: FDA-Public Use
  Company Number: A-US2005-10145

PATIENT
  Age: 2 Year
  Sex: Female
  Weight: 15.6 kg

DRUGS (10)
  1. ZAVESCA [Suspect]
     Indication: TAY-SACHS DISEASE
     Dosage: 50 MG, TID , ORAL
     Route: 048
     Dates: start: 20050624, end: 20050706
  2. PHENOBARBITAL TAB [Concomitant]
  3. TOPAMAX [Concomitant]
  4. TRILEPTAL [Concomitant]
  5. PULMICORT [Concomitant]
  6. PREVACID (LANSOPARZOLE) [Concomitant]
  7. NASONEX [Concomitant]
  8. DUONEB [Concomitant]
  9. CULTUREL [Concomitant]
  10. DIASTAT [Concomitant]

REACTIONS (2)
  - CONDITION AGGRAVATED [None]
  - TONIC CONVULSION [None]
